FAERS Safety Report 5609306-1 (Version None)
Quarter: 2008Q1

REPORT INFORMATION
  Report Type: 
  Country: None (occurrence: None)
  Receive Date: 20080131
  Receipt Date: 20080122
  Transmission Date: 20080703
  Serious: Yes (Hospitalization, Other)
  Sender: FDA-Public Use
  Company Number: US-MERCK-0708USA03908

PATIENT
  Age: 63 Year
  Sex: Female
  Weight: 40 kg

DRUGS (5)
  1. FOSAMAX [Suspect]
     Route: 048
     Dates: start: 19950101, end: 20010101
  2. FOSAMAX [Suspect]
     Route: 048
     Dates: start: 20010101, end: 20060816
  3. PLAQUENIL [Concomitant]
     Indication: RHEUMATOID ARTHRITIS
     Route: 065
     Dates: start: 19900101
  4. MEDROL [Concomitant]
     Indication: RHEUMATOID ARTHRITIS
     Route: 065
     Dates: start: 19900101
  5. FERREX [Concomitant]
     Route: 065
     Dates: start: 20000101

REACTIONS (16)
  - ACUTE SINUSITIS [None]
  - COLONIC POLYP [None]
  - CORONARY ARTERY DISEASE [None]
  - GASTRIC ULCER HAEMORRHAGE [None]
  - GASTRITIS [None]
  - HEADACHE [None]
  - INSOMNIA [None]
  - IRON DEFICIENCY ANAEMIA [None]
  - ISCHAEMIC CARDIOMYOPATHY [None]
  - OSTEOMYELITIS [None]
  - OSTEONECROSIS [None]
  - PERIPHERAL ISCHAEMIA [None]
  - PERIPHERAL VASCULAR DISORDER [None]
  - RENAL FAILURE ACUTE [None]
  - UPPER RESPIRATORY TRACT INFECTION [None]
  - WEIGHT DECREASED [None]
